FAERS Safety Report 18927945 (Version 2)
Quarter: 2021Q1

REPORT INFORMATION
  Report Type: Report from Study
  Country: ES (occurrence: ES)
  Receive Date: 20210223
  Receipt Date: 20210226
  Transmission Date: 20210420
  Serious: Yes (Other)
  Sender: FDA-Public Use
  Company Number: NVSC2021ES035771

PATIENT
  Age: 81 Year
  Sex: Female

DRUGS (15)
  1. TORASEMIDE [Concomitant]
     Active Substance: TORSEMIDE
     Indication: SURGERY
     Dosage: UNK
     Route: 065
     Dates: start: 20060307
  2. ATORVASTATIN [Concomitant]
     Active Substance: ATORVASTATIN
     Indication: DYSLIPIDAEMIA
     Dosage: UNK
     Route: 065
     Dates: start: 20050101
  3. DEXAMETHASONE. [Concomitant]
     Active Substance: DEXAMETHASONE
     Indication: VITRITIS
     Dosage: UNK
     Route: 065
     Dates: start: 20210211
  4. OPTOVITE B12 [Concomitant]
     Active Substance: CYANOCOBALAMIN
     Indication: VITAMIN B12 DEFICIENCY
     Dosage: UNK
     Route: 065
     Dates: start: 20050101
  5. LEVOFLOXACIN. [Concomitant]
     Active Substance: LEVOFLOXACIN
     Indication: BRONCHIECTASIS
     Dosage: UNK
     Route: 065
     Dates: start: 20150101
  6. PARACETAMOL [Concomitant]
     Active Substance: ACETAMINOPHEN
     Indication: ARTHRITIS
     Dosage: UNK
     Route: 065
     Dates: start: 20050101
  7. LYRICA [Concomitant]
     Active Substance: PREGABALIN
     Indication: NEURALGIA
     Dosage: UNK
     Route: 065
     Dates: start: 20050101
  8. TRIAMCINOLONE [Concomitant]
     Active Substance: TRIAMCINOLONE
     Indication: VITRITIS
     Dosage: UNK
     Route: 065
     Dates: start: 20210211, end: 20210211
  9. BROLUCIZUMAB. [Suspect]
     Active Substance: BROLUCIZUMAB
     Indication: NEOVASCULAR AGE-RELATED MACULAR DEGENERATION
     Dosage: 6 MG
     Route: 031
     Dates: start: 20201118
  10. CLOPIDOGREL [Concomitant]
     Active Substance: CLOPIDOGREL BISULFATE
     Indication: SURGERY
     Dosage: UNK
     Route: 065
     Dates: start: 20030307
  11. MIRAPEXIN [Concomitant]
     Active Substance: PRAMIPEXOLE
     Indication: RESTLESS LEGS SYNDROME
     Dosage: UNK
     Route: 065
     Dates: start: 20140101
  12. DE ICOL [Concomitant]
     Indication: VITRITIS
     Dosage: UNK
     Route: 065
     Dates: start: 20210211
  13. LAMBDALINA [Concomitant]
     Indication: PAIN IN EXTREMITY
     Dosage: UNK
     Route: 065
     Dates: start: 20190101
  14. ALPRAZOLAM. [Concomitant]
     Active Substance: ALPRAZOLAM
     Indication: ANXIETY
     Dosage: UNK
     Route: 065
     Dates: start: 20140101
  15. TOVANOR BREEZHALER [Concomitant]
     Active Substance: GLYCOPYRROLATE
     Indication: BRONCHIECTASIS
     Dosage: UNK
     Route: 065
     Dates: start: 20150101

REACTIONS (1)
  - Visual acuity reduced [Recovered/Resolved with Sequelae]

NARRATIVE: CASE EVENT DATE: 20210211
